FAERS Safety Report 10646091 (Version 1)
Quarter: 2014Q4

REPORT INFORMATION
  Report Type: Spontaneous
  Country: FR (occurrence: FR)
  Receive Date: 20141211
  Receipt Date: 20141211
  Transmission Date: 20150529
  Serious: Yes (Hospitalization)
  Sender: FDA-Public Use
  Company Number: FR-MYLANLABS-2014M1013608

PATIENT

DRUGS (4)
  1. LERCAN [Concomitant]
     Active Substance: LERCANIDIPINE
     Dosage: 20 MG, QD
     Route: 048
  2. DIAMOX                             /00016901/ [Concomitant]
     Active Substance: ACETAZOLAMIDE
     Dosage: 0.5 MG, BID
     Route: 048
  3. FONDAPARINUX [Suspect]
     Active Substance: FONDAPARINUX
     Indication: PRODUCT USED FOR UNKNOWN INDICATION
     Dosage: UNK
     Route: 058
     Dates: start: 201410, end: 20141021
  4. KALEROID [Concomitant]
     Dosage: UNK, QD
     Route: 048

REACTIONS (3)
  - Blood creatinine increased [Recovering/Resolving]
  - Haematoma [Recovering/Resolving]
  - Anaemia [Recovering/Resolving]

NARRATIVE: CASE EVENT DATE: 201410
